FAERS Safety Report 17144842 (Version 1)
Quarter: 2019Q4

REPORT INFORMATION
  Report Type: Spontaneous
  Country: FR (occurrence: FR)
  Receive Date: 20191212
  Receipt Date: 20191212
  Transmission Date: 20200122
  Serious: Yes (Other)
  Sender: FDA-Public Use
  Company Number: FR-MYLANLABS-2019M1121032

PATIENT
  Age: 54 Year
  Sex: Female
  Weight: 44 kg

DRUGS (9)
  1. SKENAN [Concomitant]
     Active Substance: MORPHINE SULFATE
  2. ERBITUX [Suspect]
     Active Substance: CETUXIMAB
     Indication: LIP AND/OR ORAL CAVITY CANCER
     Dosage: 500 MILLIGRAM/SQ. METER, Q2W
     Route: 041
     Dates: start: 20181022, end: 20190808
  3. NOCTAMIDE [Concomitant]
     Active Substance: LORMETAZEPAM
  4. DOXYCYCLINE. [Suspect]
     Active Substance: DOXYCYCLINE
     Indication: ANTIBIOTIC PROPHYLAXIS
     Dosage: 100 MILLIGRAM, QD
     Route: 048
     Dates: start: 20181022, end: 20190808
  5. INNOHEP [Concomitant]
     Active Substance: TINZAPARIN SODIUM
  6. NEBILOX [Concomitant]
     Active Substance: NEBIVOLOL HYDROCHLORIDE
  7. ACTISKENAN [Concomitant]
     Active Substance: MORPHINE SULFATE
  8. STRESAM [Concomitant]
     Active Substance: ETIFOXINE
  9. ONBREZ BREEZHALER [Concomitant]
     Active Substance: INDACATEROL

REACTIONS (1)
  - Hepatocellular injury [Not Recovered/Not Resolved]

NARRATIVE: CASE EVENT DATE: 20190808
